FAERS Safety Report 9091138 (Version 1)
Quarter: 2013Q1

REPORT INFORMATION
  Report Type: Spontaneous
  Country: US (occurrence: US)
  Receive Date: 20130201
  Receipt Date: 20130201
  Transmission Date: 20140127
  Serious: No
  Sender: FDA-Public Use
  Company Number: US-009507513-1301USA014565

PATIENT
  Sex: 0

DRUGS (2)
  1. VICTRELIS [Suspect]
     Indication: HEPATITIS C
     Dosage: UNK
  2. PEGINTRON [Suspect]
     Dosage: UNK

REACTIONS (3)
  - Pain [Unknown]
  - Tremor [Unknown]
  - Nausea [Unknown]
